FAERS Safety Report 15031752 (Version 1)
Quarter: 2018Q2

REPORT INFORMATION
  Report Type: Spontaneous
  Country: FR (occurrence: FR)
  Receive Date: 20180619
  Receipt Date: 20180619
  Transmission Date: 20180711
  Serious: Yes (Other)
  Sender: FDA-Public Use
  Company Number: FR-MYLANLABS-2018M1041390

PATIENT
  Age: 84 Year
  Sex: Female

DRUGS (3)
  1. BISOPROLOL SANDOZ [Suspect]
     Active Substance: BISOPROLOL
     Indication: HYPERTENSION
     Dosage: UNK
     Route: 048
  2. LERCANIDIPINE SANDOZ [Suspect]
     Active Substance: LERCANIDIPINE HYDROCHLORIDE
     Indication: HYPERTENSION
     Dosage: UNK
     Route: 048
  3. HYDROCHLOROTHIAZIDE,IRBESARTAN MYLAN [Suspect]
     Active Substance: HYDROCHLOROTHIAZIDE\IRBESARTAN
     Indication: HYPERTENSION
     Dosage: UNK
     Route: 048

REACTIONS (13)
  - Peripheral coldness [Unknown]
  - Auditory disorder [Unknown]
  - Hot flush [Unknown]
  - Constipation [Unknown]
  - Epistaxis [Unknown]
  - Vision blurred [Unknown]
  - Kidney infection [Not Recovered/Not Resolved]
  - Rhinorrhoea [Unknown]
  - Arthralgia [Unknown]
  - Myalgia [Unknown]
  - Muscle spasms [Unknown]
  - Scab [Unknown]
  - Pruritus [Unknown]

NARRATIVE: CASE EVENT DATE: 2017
